FAERS Safety Report 8344922-8 (Version None)
Quarter: 2012Q2

REPORT INFORMATION
  Report Type: 
  Country: None (occurrence: None)
  Receive Date: 20120508
  Receipt Date: 20120503
  Transmission Date: 20120825
  Serious: Yes (Life-Threatening, Hospitalization)
  Sender: FDA-Public Use
  Company Number: ES-BAYER-2012-042997

PATIENT
  Age: 91 Year
  Sex: Female

DRUGS (6)
  1. SINTROM [Interacting]
     Indication: ATRIAL FIBRILLATION
     Route: 048
     Dates: start: 20111101, end: 20111222
  2. PANTOPRAZOLE [Concomitant]
     Indication: PROPHYLAXIS AGAINST GASTROINTESTINAL ULCER
     Dosage: 40 MG, QD
     Route: 048
     Dates: start: 20111101
  3. ACETAMINOPHEN [Concomitant]
     Indication: OSTEOARTHRITIS
     Dosage: 1 G, TID
     Route: 048
     Dates: start: 20100101
  4. PEPSAMAR [Concomitant]
     Indication: PROPHYLAXIS AGAINST GASTROINTESTINAL ULCER
     Dosage: 233 MG, QD
     Route: 048
     Dates: start: 20111101, end: 20111222
  5. ASPIRIN [Suspect]
     Indication: ARTERIAL INSUFFICIENCY
     Dosage: 100 MG, QD
     Route: 048
     Dates: start: 20111101, end: 20111222
  6. ATORVASTATIN [Concomitant]
     Indication: DYSLIPIDAEMIA
     Dosage: 20 MG, QD
     Route: 048
     Dates: start: 20080101

REACTIONS (4)
  - RENAL FAILURE [None]
  - CONDITION AGGRAVATED [None]
  - ANAEMIA [None]
  - UPPER GASTROINTESTINAL HAEMORRHAGE [None]
